FAERS Safety Report 8035726-4 (Version None)
Quarter: 2011Q4

REPORT INFORMATION
  Report Type: 
  Country: None (occurrence: None)
  Receive Date: 20111227
  Receipt Date: 20111213
  Transmission Date: 20120403
  Serious: Yes (Other)
  Sender: FDA-Public Use
  Company Number: KR-1189429

PATIENT
  Age: 29 Year
  Sex: Male

DRUGS (1)
  1. PROPARACAINE HCL [Suspect]
     Dosage: OPHTHALMIC
     Route: 047

REACTIONS (11)
  - IMPAIRED HEALING [None]
  - CORNEAL ENDOTHELIAL CELL LOSS [None]
  - KERATITIS [None]
  - VISUAL ACUITY REDUCED [None]
  - OCULAR DISCOMFORT [None]
  - CONJUNCTIVAL HYPERAEMIA [None]
  - CORNEAL OPACITY [None]
  - EYE PAIN [None]
  - DRUG ABUSE [None]
  - EYE OEDEMA [None]
  - CORNEAL INFILTRATES [None]
